FAERS Safety Report 16050358 (Version 1)
Quarter: 2019Q1

REPORT INFORMATION
  Report Type: Report from Study
  Country: CN (occurrence: CN)
  Receive Date: 20190308
  Receipt Date: 20190308
  Transmission Date: 20190418
  Serious: Yes (Other)
  Sender: FDA-Public Use
  Company Number: CN-ROCHE-2273188

PATIENT

DRUGS (2)
  1. CAPECITABINE. [Suspect]
     Active Substance: CAPECITABINE
     Indication: GALLBLADDER CANCER
     Route: 048
  2. GEMCITABINE [Suspect]
     Active Substance: GEMCITABINE\GEMCITABINE HYDROCHLORIDE
     Indication: GALLBLADDER CANCER
     Route: 041

REACTIONS (13)
  - Haemoglobin decreased [Unknown]
  - Skin reaction [Unknown]
  - Off label use [Unknown]
  - Granulocyte count decreased [Unknown]
  - Nausea [Unknown]
  - Platelet count decreased [Unknown]
  - Diarrhoea [Unknown]
  - Constipation [Unknown]
  - Hepatic function abnormal [Unknown]
  - Bone marrow failure [Unknown]
  - Pigmentation disorder [Unknown]
  - Vomiting [Unknown]
  - Dermatitis [Unknown]
